FAERS Safety Report 5658728-1 (Version None)
Quarter: 2008Q1

REPORT INFORMATION
  Report Type: 
  Country: None (occurrence: None)
  Receive Date: 20080310
  Receipt Date: 20070406
  Transmission Date: 20080703
  Serious: No
  Sender: FDA-Public Use
  Company Number: US-BAYER-200711040BCC

PATIENT
  Sex: Male
  Weight: 75 kg

DRUGS (1)
  1. ALEVE [Suspect]
     Indication: BACK PAIN
     Dosage: TOTAL DAILY DOSE: 440 MG  UNIT DOSE: 220 MG
     Route: 048

REACTIONS (5)
  - FEELING ABNORMAL [None]
  - HYPERSENSITIVITY [None]
  - PRURITUS [None]
  - SWELLING [None]
  - URTICARIA [None]
